FAERS Safety Report 20718653 (Version 4)
Quarter: 2023Q1

REPORT INFORMATION
  Report Type: Report from Study
  Country: US (occurrence: US)
  Receive Date: 20220418
  Receipt Date: 20230223
  Transmission Date: 20230418
  Serious: Yes (Hospitalization, Other)
  Sender: FDA-Public Use
  Company Number: US-ACADIA PHARMACEUTICALS INC.-ACA-2022-PIM-001293

PATIENT
  Sex: Male

DRUGS (6)
  1. NUPLAZID [Suspect]
     Active Substance: PIMAVANSERIN TARTRATE
     Indication: Parkinson^s disease
     Dosage: 34 MILLIGRAM, QD
     Route: 048
     Dates: start: 202009
  2. NUPLAZID [Suspect]
     Active Substance: PIMAVANSERIN TARTRATE
     Indication: Parkinson^s disease psychosis
     Dosage: 34 MILLIGRAM, QD
     Route: 048
  3. NUPLAZID [Suspect]
     Active Substance: PIMAVANSERIN TARTRATE
     Dosage: 34 MILLIGRAM, QD
     Route: 048
  4. AMITRIPTYLINE [Concomitant]
     Active Substance: AMITRIPTYLINE
  5. NAPROXEN [Concomitant]
     Active Substance: NAPROXEN
  6. NEURONTIN [Concomitant]
     Active Substance: GABAPENTIN

REACTIONS (13)
  - Skull fracture [Recovered/Resolved]
  - Facial bones fracture [Recovered/Resolved]
  - Femur fracture [Unknown]
  - Facial bones fracture [Unknown]
  - Cerebral haemorrhage [Unknown]
  - Contusion [Recovered/Resolved]
  - Scab [Recovered/Resolved]
  - Fall [Recovered/Resolved]
  - Fall [Recovered/Resolved]
  - Fall [Unknown]
  - Product dose omission issue [Recovered/Resolved]
  - Hallucination, visual [Recovered/Resolved]
  - Fall [Unknown]

NARRATIVE: CASE EVENT DATE: 20220101
